FAERS Safety Report 19036327 (Version 1)
Quarter: 2021Q1

REPORT INFORMATION
  Report Type: Spontaneous
  Country: US (occurrence: US)
  Receive Date: 20210319
  Receipt Date: 20210319
  Transmission Date: 20210420
  Serious: Yes (Life-Threatening)
  Sender: FDA-Public Use
  Company Number: None

PATIENT
  Age: 12 Year
  Sex: Male
  Weight: 45 kg

DRUGS (1)
  1. ATOMOXETINE 80 MG [Suspect]
     Active Substance: ATOMOXETINE HYDROCHLORIDE
     Indication: ATTENTION DEFICIT HYPERACTIVITY DISORDER
     Dosage: ?          QUANTITY:1 CAPSULE(S);?
     Route: 048

REACTIONS (15)
  - Nightmare [None]
  - Decreased appetite [None]
  - Self esteem decreased [None]
  - Helplessness [None]
  - Tachyphrenia [None]
  - Somnambulism [None]
  - Condition aggravated [None]
  - Tearfulness [None]
  - Disturbance in attention [None]
  - Adverse drug reaction [None]
  - Intentional self-injury [None]
  - Depressed mood [None]
  - Insomnia [None]
  - Decreased interest [None]
  - Feeling of despair [None]

NARRATIVE: CASE EVENT DATE: 20210305
